FAERS Safety Report 4518889-4 (Version None)
Quarter: 2004Q4

REPORT INFORMATION
  Report Type: 
  Country: None (occurrence: None)
  Receive Date: 20041201
  Receipt Date: 20041117
  Transmission Date: 20050328
  Serious: Yes (Hospitalization)
  Sender: FDA-Public Use
  Company Number: SUS1-2004-00788

PATIENT
  Sex: Male

DRUGS (2)
  1. ADDERALL 12.5 [Suspect]
  2. LEXAPRO [Suspect]

REACTIONS (4)
  - AGITATION [None]
  - DELUSION [None]
  - DRUG INTERACTION [None]
  - HALLUCINATION [None]
